FAERS Safety Report 10391770 (Version 1)
Quarter: 2014Q3

REPORT INFORMATION
  Report Type: Spontaneous
  Country: US (occurrence: US)
  Receive Date: 20140819
  Receipt Date: 20140819
  Transmission Date: 20150326
  Serious: Yes (Hospitalization)
  Sender: FDA-Public Use
  Company Number: US-AMGEN-USASP2014061961

PATIENT
  Age: 52 Year
  Sex: Female

DRUGS (1)
  1. ENBREL [Suspect]
     Active Substance: ETANERCEPT
     Indication: PSORIASIS
     Dosage: 50 MG, 3 TIMES PER WEEK
     Route: 065
     Dates: start: 20081201, end: 201204

REACTIONS (4)
  - Gastric bypass [Recovered/Resolved]
  - Psoriasis [Not Recovered/Not Resolved]
  - Gastrointestinal anastomotic leak [Recovered/Resolved]
  - Dehydration [Recovered/Resolved]

NARRATIVE: CASE EVENT DATE: 2012
